FAERS Safety Report 6851823-0 (Version None)
Quarter: 2010Q3

REPORT INFORMATION
  Report Type: 
  Country: None (occurrence: None)
  Receive Date: 20100717
  Receipt Date: 20071101
  Transmission Date: 20110219
  Serious: No
  Sender: FDA-Public Use
  Company Number: US-PFIZER INC-2007093313

PATIENT
  Sex: Female
  Weight: 63.5 kg

DRUGS (4)
  1. CHANTIX [Suspect]
     Indication: SMOKING CESSATION THERAPY
     Dates: start: 20070828, end: 20070901
  2. PLAQUENIL [Concomitant]
  3. CYMBALTA [Concomitant]
  4. LAMICTAL [Concomitant]

REACTIONS (3)
  - ABDOMINAL DISCOMFORT [None]
  - MALAISE [None]
  - VOMITING [None]
